FAERS Safety Report 7202810-4 (Version None)
Quarter: 2010Q4

REPORT INFORMATION
  Report Type: 
  Country: None (occurrence: None)
  Receive Date: 20101229
  Receipt Date: 20101224
  Transmission Date: 20110411
  Serious: Yes (Death, Hospitalization, Other)
  Sender: FDA-Public Use
  Company Number: FR-AMGEN-UK342208

PATIENT

DRUGS (3)
  1. VECTIBIX [Suspect]
     Indication: COLORECTAL CANCER
     Dosage: 460 MG, Q2WK
     Route: 042
     Dates: start: 20090227, end: 20090313
  2. CEFTRIAXONE SODIUM [Concomitant]
     Dosage: UNK UNK, UNK
     Route: 065
  3. SOLU-MEDROL [Concomitant]
     Dosage: 80 MG, QD
     Route: 065
     Dates: start: 20090323, end: 20090420

REACTIONS (7)
  - CEREBRAL ISCHAEMIA [None]
  - CONFUSIONAL STATE [None]
  - DISEASE PROGRESSION [None]
  - FALL [None]
  - LOSS OF CONSCIOUSNESS [None]
  - MALAISE [None]
  - PYREXIA [None]
